FAERS Safety Report 9127849 (Version 2)
Quarter: 2013Q2

REPORT INFORMATION
  Report Type: Spontaneous
  Country: US (occurrence: US)
  Receive Date: 20130228
  Receipt Date: 20130624
  Transmission Date: 20140414
  Serious: No
  Sender: FDA-Public Use
  Company Number: US-PFIZER INC-2013070390

PATIENT
  Age: 74 Year
  Sex: Female
  Weight: 58.96 kg

DRUGS (5)
  1. AMIODARONE HCL [Suspect]
     Indication: ATRIAL FIBRILLATION
     Dosage: UNK
     Dates: start: 1998, end: 2000
  2. AZOR [Concomitant]
     Dosage: UNK
  3. SYNTHROID [Concomitant]
     Dosage: UNK
  4. LIVALO [Concomitant]
     Dosage: UNK
  5. CELEBREX [Concomitant]
     Dosage: UNK, AS NEEDED

REACTIONS (5)
  - Vision blurred [Unknown]
  - Intraocular pressure increased [Unknown]
  - Liver disorder [Unknown]
  - Abdominal discomfort [Unknown]
  - Thyroid disorder [Unknown]
